FAERS Safety Report 8399687-0 (Version None)
Quarter: 2012Q2

REPORT INFORMATION
  Report Type: 
  Country: None (occurrence: None)
  Receive Date: 20120531
  Receipt Date: 20120525
  Transmission Date: 20120825
  Serious: Yes (Death)
  Sender: FDA-Public Use
  Company Number: DE-CELGENEUS-062-C5013-12053200

PATIENT
  Age: 58 Year
  Sex: Male
  Weight: 90.5 kg

DRUGS (1)
  1. LENALIDOMIDE [Suspect]
     Route: 048
     Dates: start: 20120522

REACTIONS (1)
  - CARDIOGENIC SHOCK [None]
